FAERS Safety Report 9298809 (Version 2)
Quarter: 2014Q2

REPORT INFORMATION
  Report Type: Report from Study
  Country: US (occurrence: US)
  Receive Date: 20121227
  Receipt Date: 20140502
  Transmission Date: 20141212
  Serious: Yes (Other)
  Sender: FDA-Public Use
  Company Number: PHEH2012US014970

PATIENT
  Age: 36 Year
  Sex: Female

DRUGS (4)
  1. AFINITOR [Suspect]
     Indication: ANGIOMYOLIPOMA
     Dosage: 10 MG, DAILY
     Route: 048
     Dates: start: 20120711
  2. AFINITOR [Suspect]
     Dosage: 5 MG, UNK
     Route: 048
     Dates: start: 20120919
  3. AFINITOR [Suspect]
     Dosage: 7.5 MG, UNK
     Route: 048
  4. LISINOPRIL [Concomitant]

REACTIONS (13)
  - Blood cholesterol increased [Unknown]
  - Renal pain [Not Recovered/Not Resolved]
  - Lymphadenopathy [Unknown]
  - Pain [Unknown]
  - Migraine [Unknown]
  - Acne [Not Recovered/Not Resolved]
  - Stomatitis [Not Recovered/Not Resolved]
  - Arthralgia [Unknown]
  - Diarrhoea [Not Recovered/Not Resolved]
  - Epistaxis [Unknown]
  - Vomiting [Not Recovered/Not Resolved]
  - Blood pressure increased [Unknown]
  - Stress [Not Recovered/Not Resolved]
